FAERS Safety Report 9553382 (Version 1)
Quarter: 2013Q3

REPORT INFORMATION
  Report Type: Spontaneous
  Country: US (occurrence: US)
  Receive Date: 20130925
  Receipt Date: 20130925
  Transmission Date: 20140515
  Serious: Yes (Other)
  Sender: FDA-Public Use
  Company Number: US-SANOFI-AVENTIS-2013SA093143

PATIENT
  Age: 72 Year
  Sex: Female

DRUGS (4)
  1. FEXOFENADINE HYDROCHLORIDE [Suspect]
     Route: 048
  2. COUMADIN [Suspect]
     Route: 065
  3. XARELTO [Suspect]
     Route: 065
  4. THYROID THERAPY [Concomitant]
     Route: 065

REACTIONS (7)
  - Skin cancer [Unknown]
  - Skin cancer [Unknown]
  - Dizziness [Unknown]
  - Memory impairment [Unknown]
  - Anticoagulant therapy [Unknown]
  - Haemorrhage subcutaneous [Unknown]
  - Extra dose administered [Unknown]
